FAERS Safety Report 13566287 (Version 1)
Quarter: 2017Q2

REPORT INFORMATION
  Report Type: Spontaneous
  Country: US (occurrence: US)
  Receive Date: 20170521
  Receipt Date: 20170521
  Transmission Date: 20170830
  Serious: No
  Sender: FDA-Public Use
  Company Number: US-PFM-2017-01213

PATIENT
  Age: 4 Month
  Sex: Female
  Weight: 6.8 kg

DRUGS (2)
  1. HEMANGEOL [Suspect]
     Active Substance: PROPRANOLOL HYDROCHLORIDE
     Indication: HAEMANGIOMA
     Dosage: UNK ML, UNK
     Route: 048
     Dates: start: 20170118
  2. HEMANGEOL [Suspect]
     Active Substance: PROPRANOLOL HYDROCHLORIDE
     Dosage: 2.4 ML, UNK
     Route: 048

REACTIONS (2)
  - Somnolence [Not Recovered/Not Resolved]
  - Inappropriate affect [Unknown]

NARRATIVE: CASE EVENT DATE: 2017
